FAERS Safety Report 17297975 (Version 1)
Quarter: 2020Q1

REPORT INFORMATION
  Report Type: Spontaneous
  Country: US (occurrence: US)
  Receive Date: 20200102
  Receipt Date: 20200102
  Transmission Date: 20200409
  Serious: Yes (Hospitalization)
  Sender: FDA-Public Use
  Company Number: None

PATIENT
  Age: 40 Year
  Sex: Male

DRUGS (6)
  1. FUROSEMIDE. [Suspect]
     Active Substance: FUROSEMIDE
  2. MYCOPHENOLATE [Concomitant]
     Active Substance: MYCOPHENOLIC ACID
  3. OMEPRAZOLE. [Concomitant]
     Active Substance: OMEPRAZOLE
  4. AMBRISENTAN 5MG TABLETS 30/BO: 5MG [Suspect]
     Active Substance: AMBRISENTAN
     Indication: SCLERODERMA
     Route: 048
     Dates: start: 201609
  5. SILDENAFIL. [Concomitant]
     Active Substance: SILDENAFIL
  6. AZITHYROMYCIN [Concomitant]

REACTIONS (6)
  - Pneumonia aspiration [None]
  - Dyspnoea [None]
  - Hypoxia [None]
  - Acute respiratory failure [None]
  - Respiratory failure [None]
  - Upper respiratory tract infection [None]

NARRATIVE: CASE EVENT DATE: 20191221
